FAERS Safety Report 5259522-6 (Version None)
Quarter: 2007Q1

REPORT INFORMATION
  Report Type: 
  Country: None (occurrence: None)
  Receive Date: 20070306
  Receipt Date: 20070221
  Transmission Date: 20070707
  Serious: Yes (Hospitalization, Other)
  Sender: FDA-Public Use
  Company Number: PAR_1390_2007

PATIENT
  Age: 35 Year
  Sex: Female

DRUGS (4)
  1. CLOMIPHENE CITRATE [Suspect]
     Indication: INFERTILITY
     Dosage: DF
  2. LAMOTRIGINE [Concomitant]
  3. CLONAZEPAM [Concomitant]
  4. BUPROPION HCL [Concomitant]

REACTIONS (21)
  - CONFUSIONAL STATE [None]
  - CRYING [None]
  - DELIRIUM [None]
  - DISORIENTATION [None]
  - DISTURBANCE IN ATTENTION [None]
  - DYSPHEMIA [None]
  - ECHOLALIA [None]
  - ELEVATED MOOD [None]
  - ENERGY INCREASED [None]
  - FEAR [None]
  - HYPERSEXUALITY [None]
  - ILLOGICAL THINKING [None]
  - INCOHERENT [None]
  - INSOMNIA [None]
  - LOOSE ASSOCIATIONS [None]
  - MOOD SWINGS [None]
  - ORAL INTAKE REDUCED [None]
  - PERSECUTORY DELUSION [None]
  - SELF INJURIOUS BEHAVIOUR [None]
  - THINKING ABNORMAL [None]
  - VERBIGERATION [None]
